FAERS Safety Report 10334252 (Version 1)
Quarter: 2014Q3

REPORT INFORMATION
  Report Type: Spontaneous
  Country: US (occurrence: None)
  Receive Date: 20140721
  Receipt Date: 20140721
  Transmission Date: 20150326
  Serious: Yes (Other)
  Sender: FDA-Public Use
  Company Number: AUR-APL-2014-07309

PATIENT
  Sex: Male

DRUGS (1)
  1. CITALOPRAM HYDROBROMIDE. [Suspect]
     Active Substance: CITALOPRAM HYDROBROMIDE
     Indication: ANXIETY

REACTIONS (5)
  - Erection increased [None]
  - Painful erection [None]
  - Burning sensation [None]
  - Dysuria [None]
  - Urinary incontinence [None]
